FAERS Safety Report 7116006-8 (Version None)
Quarter: 2010Q4

REPORT INFORMATION
  Report Type: 
  Country: None (occurrence: None)
  Receive Date: 20101122
  Receipt Date: 20101110
  Transmission Date: 20110411
  Serious: Yes (Hospitalization)
  Sender: FDA-Public Use
  Company Number: NL-ROCHE-637026

PATIENT
  Sex: Male

DRUGS (4)
  1. BEVACIZUMAB [Suspect]
     Indication: COLORECTAL CANCER
     Route: 042
     Dates: start: 20090206, end: 20090923
  2. CAPECITABINE [Suspect]
     Indication: COLORECTAL CANCER
     Route: 042
     Dates: start: 20090206, end: 20100922
  3. PYRIDOXINE HCL [Concomitant]
  4. TAMSULOSIN [Concomitant]

REACTIONS (3)
  - C-REACTIVE PROTEIN INCREASED [None]
  - MALAISE [None]
  - Q FEVER [None]
